FAERS Safety Report 17909386 (Version 2)
Quarter: 2025Q3

REPORT INFORMATION
  Report Type: Spontaneous
  Country: GB (occurrence: GB)
  Receive Date: 20200618
  Receipt Date: 20250825
  Transmission Date: 20251020
  Serious: Yes (Other)
  Sender: AUROBINDO
  Company Number: GB-ASPEN-GLO2020GB004984

PATIENT
  Age: 68 Year
  Sex: Female

DRUGS (12)
  1. METRONIDAZOLE [Suspect]
     Active Substance: METRONIDAZOLE
     Indication: Aortic aneurysm repair
     Route: 065
  2. FENTANYL [Suspect]
     Active Substance: FENTANYL
     Indication: Aortic aneurysm repair
     Route: 065
  3. POVIDONE-IODINE [Suspect]
     Active Substance: POVIDONE-IODINE
     Indication: Aortic aneurysm repair
     Route: 061
  4. POVIDONE-IODINE [Suspect]
     Active Substance: POVIDONE-IODINE
     Indication: Skin test
     Route: 065
  5. GENTAMICIN [Suspect]
     Active Substance: GENTAMICIN
     Indication: Aortic aneurysm repair
     Route: 065
  6. GENTAMICIN [Suspect]
     Active Substance: GENTAMICIN
     Indication: Skin test
  7. ROCURONIUM [Suspect]
     Active Substance: ROCURONIUM BROMIDE
     Indication: Aortic aneurysm repair
     Route: 065
  8. ROCURONIUM [Suspect]
     Active Substance: ROCURONIUM BROMIDE
     Indication: Skin test
  9. ATRACURIUM [Suspect]
     Active Substance: ATRACURIUM
     Indication: Skin test
     Route: 065
  10. CISATRACURIUM [Suspect]
     Active Substance: CISATRACURIUM
     Indication: Skin test
     Route: 065
  11. CHLORHEXIDINE [Suspect]
     Active Substance: CHLORHEXIDINE
     Indication: Aortic aneurysm repair
     Route: 061
  12. PROPOFOL [Suspect]
     Active Substance: PROPOFOL
     Indication: Aortic aneurysm repair
     Route: 065

REACTIONS (2)
  - Skin test positive [Unknown]
  - Anaphylactic reaction [Recovered/Resolved]
